FAERS Safety Report 6907703-5 (Version None)
Quarter: 2010Q3

REPORT INFORMATION
  Report Type: 
  Country: None (occurrence: None)
  Receive Date: 20100805
  Receipt Date: 20100803
  Transmission Date: 20110219
  Serious: Yes (Death, Life-Threatening)
  Sender: FDA-Public Use
  Company Number: US-B.I. PHARMACEUTICALS,INC./RIDGEFIELD-2010-BP-06787PF

PATIENT
  Sex: Female
  Weight: 86.18 kg

DRUGS (10)
  1. SPIRIVA [Suspect]
     Indication: ASTHMA
     Route: 055
  2. LYRICA [Suspect]
     Indication: FIBROMYALGIA
     Dosage: 225 MG
     Route: 048
     Dates: start: 20070901
  3. LYRICA [Suspect]
     Indication: NEUROPATHY PERIPHERAL
  4. HYDROCODONE BITARTRATE [Suspect]
     Indication: PAIN
  5. AMITRIPTYLINE HYDROCHLORIDE [Suspect]
     Indication: SLEEP DISORDER
  6. LORAZEPAM [Suspect]
     Indication: ANXIETY
  7. COMPRESSED OXYGEN [Concomitant]
     Indication: ASTHMA
  8. COMPRESSED OXYGEN [Concomitant]
     Indication: DYSPNOEA
  9. BACLOFEN [Concomitant]
     Dosage: 10 MG
     Route: 048
     Dates: start: 20070101
  10. LORTAB [Concomitant]
     Route: 048
     Dates: start: 20070101

REACTIONS (2)
  - INTENTIONAL OVERDOSE [None]
  - SUICIDAL IDEATION [None]
